FAERS Safety Report 4454568-X (Version None)
Quarter: 2004Q3

REPORT INFORMATION
  Report Type: 
  Country: None (occurrence: None)
  Receive Date: 20040921
  Receipt Date: 20040914
  Transmission Date: 20050211
  Serious: Yes (Hospitalization)
  Sender: FDA-Public Use
  Company Number: CA-BRISTOL-MYERS SQUIBB COMPANY-12701900

PATIENT
  Sex: Female

DRUGS (3)
  1. AVAPRO [Suspect]
     Indication: HYPERTENSION
     Route: 048
     Dates: start: 20010721
  2. POLYCITRA-K [Concomitant]
  3. MULTIVITAMIN [Concomitant]

REACTIONS (1)
  - HEPATITIS ACUTE [None]
